FAERS Safety Report 10134604 (Version 3)
Quarter: 2014Q2

REPORT INFORMATION
  Report Type: Spontaneous
  Country: US (occurrence: US)
  Receive Date: 20140428
  Receipt Date: 20140430
  Transmission Date: 20141212
  Serious: No
  Sender: FDA-Public Use
  Company Number: US-ASTRAZENECA-2014SE09546

PATIENT
  Age: 24 Year
  Sex: Female

DRUGS (1)
  1. PULMICORT FLEXAHALER [Suspect]
     Dosage: 180 MCG ONE PUFF PER DAY
     Route: 055

REACTIONS (2)
  - Dyspnoea [Recovered/Resolved]
  - Off label use [Unknown]
